FAERS Safety Report 10228941 (Version 3)
Quarter: 2014Q3

REPORT INFORMATION
  Report Type: Spontaneous
  Country: US (occurrence: US)
  Receive Date: 20140610
  Receipt Date: 20140815
  Transmission Date: 20150326
  Serious: Yes (Hospitalization)
  Sender: FDA-Public Use
  Company Number: US-GLAXOSMITHKLINE-A1075913A

PATIENT
  Sex: Male

DRUGS (7)
  1. AVODART [Suspect]
     Active Substance: DUTASTERIDE
     Indication: BENIGN PROSTATIC HYPERPLASIA
     Dosage: .5MG PER DAY
     Route: 048
     Dates: start: 2006
  2. PRADAXA [Concomitant]
     Active Substance: DABIGATRAN ETEXILATE MESYLATE
  3. MEXILETINE [Concomitant]
     Active Substance: MEXILETINE
  4. FUROSEMIDE. [Concomitant]
     Active Substance: FUROSEMIDE
  5. POTASSIUM [Concomitant]
     Active Substance: POTASSIUM
  6. TOPROL XL [Concomitant]
     Active Substance: METOPROLOL SUCCINATE
  7. DIOVAN [Concomitant]
     Active Substance: VALSARTAN

REACTIONS (10)
  - Mitral valve replacement [Unknown]
  - Atrial fibrillation [Unknown]
  - Fatigue [Unknown]
  - Herpes zoster [Unknown]
  - Coronary artery bypass [Not Recovered/Not Resolved]
  - Pneumonia [Unknown]
  - Joint swelling [Unknown]
  - Implantable defibrillator insertion [Unknown]
  - Cardiac operation [Unknown]
  - Dyspnoea [Unknown]

NARRATIVE: CASE EVENT DATE: 2007
